FAERS Safety Report 9970170 (Version 1)
Quarter: 2014Q1

REPORT INFORMATION
  Report Type: Spontaneous
  Country: US (occurrence: US)
  Receive Date: 20140306
  Receipt Date: 20140306
  Transmission Date: 20141002
  Serious: Yes (Death)
  Sender: FDA-Public Use
  Company Number: PHEH2014US004406

PATIENT
  Age: 57 Year
  Sex: Female

DRUGS (1)
  1. AFINITOR [Suspect]

REACTIONS (1)
  - Death [Fatal]
